FAERS Safety Report 10911581 (Version 1)
Quarter: 2015Q1

REPORT INFORMATION
  Report Type: Spontaneous
  Country: US (occurrence: US)
  Receive Date: 20150313
  Receipt Date: 20150313
  Transmission Date: 20150721
  Serious: No
  Sender: FDA-Public Use
  Company Number: US-009507513-1412USA007058

PATIENT
  Sex: Female

DRUGS (3)
  1. GONADOTROPHIN, SERUM [Concomitant]
     Indication: OVULATION INDUCTION
  2. LETROZOLE. [Concomitant]
     Active Substance: LETROZOLE
     Indication: OVULATION INDUCTION
  3. GANIRELIX ACETATE INJECTION [Suspect]
     Active Substance: GANIRELIX ACETATE
     Indication: OVULATION INDUCTION

REACTIONS (1)
  - Ovarian hyperstimulation syndrome [Unknown]
